FAERS Safety Report 20456362 (Version 2)
Quarter: 2022Q1

REPORT INFORMATION
  Report Type: Spontaneous
  Country: BR (occurrence: BR)
  Receive Date: 20220210
  Receipt Date: 20220216
  Transmission Date: 20220424
  Serious: Yes (Death)
  Sender: FDA-Public Use
  Company Number: BR-DSJP-DSE-2022-104404AA

PATIENT
  Age: 73 Year
  Sex: Female

DRUGS (1)
  1. OLMESARTAN MEDOXOMIL [Suspect]
     Active Substance: OLMESARTAN MEDOXOMIL
     Dosage: UNK
     Route: 065

REACTIONS (1)
  - Diarrhoea [Fatal]
